FAERS Safety Report 4916440-8 (Version None)
Quarter: 2006Q1

REPORT INFORMATION
  Report Type: 
  Country: None (occurrence: None)
  Receive Date: 20060214
  Receipt Date: 20060203
  Transmission Date: 20060701
  Serious: Yes (Death)
  Sender: FDA-Public Use
  Company Number: 200610459GDS

PATIENT
  Age: 70 Year
  Sex: Male

DRUGS (21)
  1. CIPROFLOXACIN [Suspect]
     Dosage: 1000 MG, TOTAL DAILY, ORAL
     Route: 048
  2. ACETAMINOPHEN [Concomitant]
  3. CAPTOPRIL [Concomitant]
  4. COMBIVENT [Concomitant]
  5. DIGOXIN [Concomitant]
  6. DIMENHYDRINATE [Concomitant]
  7. ASPIRIN [Concomitant]
  8. FUROSEMIDE [Concomitant]
  9. HALOPERIDOL [Concomitant]
  10. HEPARIN [Concomitant]
  11. HUMULIN R [Concomitant]
  12. METOPROLOL [Concomitant]
  13. MIDAZOLAM HCL [Concomitant]
  14. MORPHINE [Concomitant]
  15. POLYSPORIN OINTMENT [Concomitant]
  16. POTASSIUM CHLORIDE [Concomitant]
  17. RANITIDINE [Concomitant]
  18. RISPERIDONE [Concomitant]
  19. SALMETEROL [Concomitant]
  20. SPIRONOLACTONE [Concomitant]
  21. ZOPICLONE [Concomitant]

REACTIONS (8)
  - HYPERKALAEMIA [None]
  - LEUKOCYTOSIS [None]
  - MULTI-ORGAN FAILURE [None]
  - NEPHRITIS INTERSTITIAL [None]
  - PRURITUS [None]
  - PYREXIA [None]
  - RASH [None]
  - URTICARIA [None]
